FAERS Safety Report 5466277-9 (Version None)
Quarter: 2007Q3

REPORT INFORMATION
  Report Type: 
  Country: None (occurrence: None)
  Receive Date: 20070919
  Receipt Date: 20070906
  Transmission Date: 20080115
  Serious: Yes (Hospitalization, Other)
  Sender: FDA-Public Use
  Company Number: GXKR2007GB07814

PATIENT
  Age: 28 Year
  Sex: Male
  Weight: 82 kg

DRUGS (2)
  1. MIRTAZAPINE [Suspect]
     Indication: DEPRESSION
     Dosage: 45 MG, QD, ORAL
     Route: 048
     Dates: start: 20061101, end: 20070505
  2. TRAMADOL HCL [Suspect]
     Indication: BONE PAIN
     Dosage: 100 MG, QID, ORAL
     Route: 048
     Dates: start: 20020101, end: 20070101

REACTIONS (3)
  - CONVULSION [None]
  - DRUG INTERACTION [None]
  - LOSS OF CONSCIOUSNESS [None]
